FAERS Safety Report 11077900 (Version 1)
Quarter: 2015Q2

REPORT INFORMATION
  Report Type: Spontaneous
  Country: CA (occurrence: CA)
  Receive Date: 20150430
  Receipt Date: 20150430
  Transmission Date: 20150821
  Serious: Yes (Other)
  Sender: FDA-Public Use
  Company Number: CA-ASTRAZENECA-2015SE38211

PATIENT
  Age: 80 Year
  Sex: Male
  Weight: 99.8 kg

DRUGS (9)
  1. CARBAMAZEPINE CR [Concomitant]
  2. SYNTHROID [Concomitant]
     Active Substance: LEVOTHYROXINE SODIUM
  3. VITAMIN D [Concomitant]
     Active Substance: CHOLECALCIFEROL
  4. LIPITOR [Concomitant]
     Active Substance: ATORVASTATIN CALCIUM
  5. ZOLADEX LA [Suspect]
     Active Substance: GOSERELIN ACETATE
     Indication: PROSTATE CANCER
     Route: 030
  6. BISOPROLOL [Concomitant]
     Active Substance: BISOPROLOL
  7. DILANTIN [Concomitant]
     Active Substance: PHENYTOIN
  8. VALSARTAN. [Concomitant]
     Active Substance: VALSARTAN
  9. FRAGMIN [Concomitant]
     Active Substance: DALTEPARIN SODIUM

REACTIONS (3)
  - Sleep disorder due to general medical condition, insomnia type [Unknown]
  - Feeling hot [Unknown]
  - Paraesthesia [Unknown]
